FAERS Safety Report 5725317-X (Version None)
Quarter: 2008Q2

REPORT INFORMATION
  Report Type: 
  Country: None (occurrence: None)
  Receive Date: 20080429
  Receipt Date: 20080411
  Transmission Date: 20081010
  Serious: Yes (Hospitalization)
  Sender: FDA-Public Use
  Company Number: 001#1#2008-00235

PATIENT
  Age: 44 Year
  Sex: Male

DRUGS (14)
  1. NEUPRO [Suspect]
     Indication: DEEP BRAIN STIMULATION
     Dosage: 2 MG/24H (2 MG/24H 1 IN 1 DAY(S)) TRANSDERMAL
     Route: 062
     Dates: start: 20080313, end: 20080319
  2. NEUPRO [Suspect]
     Indication: PARKINSONISM
     Dosage: 2 MG/24H (2 MG/24H 1 IN 1 DAY(S)) TRANSDERMAL
     Route: 062
     Dates: start: 20080313, end: 20080319
  3. TIAPRIDE (TIAPRIDE) [Suspect]
     Dosage: INTRAVENOUS (NOT OTHERWISE SPECIFIED)
     Route: 042
  4. MADOPAR (BENSERAZIDE HYDROCHLORIDE, LEVODOPA) [Concomitant]
  5. STALEVO 100 [Concomitant]
  6. LEVODOPA-CARBIDOPA (CARBIDOPA, LEVODOPA) [Concomitant]
  7. AMANTADINE HCL [Concomitant]
  8. MIRTAZAPINE [Concomitant]
  9. ZOLPIDEM TARTRATE [Concomitant]
  10. CLOZAPINE [Concomitant]
  11. PANTOPRAZOLE SODIUM [Concomitant]
  12. ALPRAZOLAM [Concomitant]
  13. FOLIC ACID [Concomitant]
  14. CLONAZEPAM [Concomitant]

REACTIONS (4)
  - DRUG INTERACTION [None]
  - DYSKINESIA [None]
  - RENAL FAILURE [None]
  - RHABDOMYOLYSIS [None]
